FAERS Safety Report 6289565-5 (Version None)
Quarter: 2009Q3

REPORT INFORMATION
  Report Type: 
  Country: None (occurrence: None)
  Receive Date: 20090730
  Receipt Date: 20090720
  Transmission Date: 20100115
  Serious: Yes (Death, Hospitalization, Disabling, Other)
  Sender: FDA-Public Use
  Company Number: US-ALLERGAN-0808409US

PATIENT
  Age: 7 Year
  Sex: Female
  Weight: 15.2 kg

DRUGS (42)
  1. BOTOX [Suspect]
     Indication: MUSCLE SPASTICITY
     Dosage: 220 UNITS, SINGLE
     Route: 030
     Dates: start: 20060621, end: 20060621
  2. BOTOX [Suspect]
     Indication: CEREBRAL PALSY
     Dosage: 230 UNITS, SINGLE
     Route: 030
     Dates: start: 20060913, end: 20060913
  3. BOTOX [Suspect]
     Dosage: 210 UNITS, SINGLE
     Route: 030
     Dates: start: 20061108, end: 20061108
  4. BOTOX [Suspect]
     Dosage: 240 UNITS, SINGLE
     Route: 030
     Dates: start: 20070228, end: 20070228
  5. BOTOX [Suspect]
     Dosage: 210 UNITS, SINGLE
     Route: 030
     Dates: start: 20070425, end: 20070425
  6. BOTOX [Suspect]
     Dosage: 210 UNITS, SINGLE
     Route: 030
     Dates: start: 20070718, end: 20070718
  7. BOTOX [Suspect]
     Dosage: 240 UNITS, SINGLE
     Route: 030
     Dates: start: 20071010, end: 20071010
  8. MUCOMYST [Concomitant]
     Dosage: 300 MG, QD
  9. LIORESAL [Concomitant]
     Dosage: 10 MG, Q4HR
  10. LIORESAL [Concomitant]
     Dosage: 15 MG, QID
     Dates: start: 20060831
  11. LIORESAL [Concomitant]
     Dosage: 20 MG ,TID + 15 MG, BID
     Dates: start: 20070119
  12. LIORESAL [Concomitant]
     Dosage: 20 MG, QID + 30 MG QD
     Dates: start: 20070926
  13. ATROVENT [Concomitant]
     Indication: BRONCHOSPASM
     Dosage: 0.2 MG/ML, 1 VIAL ALTERNATING WITH XOPENEX Q 2-3 HR
     Route: 055
  14. BICITRA [Concomitant]
     Indication: RENAL TUBULAR ACIDOSIS
     Dosage: 334-500 MG, 2.5 ML VIA G-BUTTON, QID
  15. NEURONTIN [Concomitant]
     Indication: CONVULSION
     Dosage: 350 MG, BID
     Dates: end: 20070122
  16. NEURONTIN [Concomitant]
     Dosage: 450 MG, BID
     Dates: start: 20070123
  17. XOPENEX [Concomitant]
     Dosage: 0.63MG/3ML, QID + PRN
     Route: 055
  18. ZANTAC [Concomitant]
     Indication: GASTROOESOPHAGEAL REFLUX DISEASE
     Dosage: 45 MG, BID
  19. ZANTAC [Concomitant]
     Dosage: 30 MG, BID
     Dates: start: 20060831
  20. DEPAKENE [Concomitant]
     Indication: CONVULSION
     Dosage: 200 MG, Q8HR
  21. DEPAKENE [Concomitant]
     Dosage: 300 MG, Q8HR
     Dates: start: 20060821, end: 20061127
  22. DEPAKENE [Concomitant]
     Dosage: 400 MG, Q8HR
     Dates: start: 20061128
  23. DEPAKENE [Concomitant]
     Dosage: 500 MG, Q8HR
     Dates: start: 20070422
  24. LACTULOSE [Concomitant]
     Dosage: 6 G, QD + PRN
  25. REGLAN [Concomitant]
     Indication: GASTROOESOPHAGEAL REFLUX DISEASE
     Dosage: 2.5 MG, Q6HR + AS DIRECTED
     Route: 048
  26. TRANXENE T-TAB [Concomitant]
     Indication: CONVULSION
     Dosage: 3.75 MG, BID FOR 5 DAYS, VIA G-BUTTON
     Route: 048
  27. PULMICORT RESPULES [Concomitant]
     Dosage: 0.25 MG/2 ML, 1 VIAL VIA HHN, BID
     Route: 055
  28. CLONIDINE HCL [Concomitant]
     Indication: AGITATION
     Dosage: 0.1 MG, 3.5 ML, QHS + PRN
     Dates: end: 20060810
  29. CLONIDINE HCL [Concomitant]
     Dosage: 0.1 MG, 4 ML, QHS + PRN
     Dates: start: 20060811
  30. INTAL [Concomitant]
     Dosage: 20 MG/2 ML, 1 AMP, TID
     Route: 055
  31. ZYRTEC [Concomitant]
     Dosage: 5 MG, QOD QOD (MO/WE/FR + PRN ON WEEKEND)
  32. TYLENOL (CAPLET) [Concomitant]
     Indication: PAIN
     Dosage: 320 MG, PRN
     Route: 048
     Dates: start: 20061017
  33. TYLENOL (CAPLET) [Concomitant]
     Indication: PYREXIA
  34. DIASTAT [Concomitant]
     Indication: CONVULSION
     Dosage: 5 MG, PRN, SEIZURES LASTING LONGER THAN 5 MINS
     Route: 054
     Dates: start: 20061026
  35. PULMOZYME [Concomitant]
     Dosage: 2.5 MG, Q12H
     Route: 055
     Dates: start: 20070419
  36. ACIDOPHILUS [Concomitant]
     Dosage: 1 DF, TID
  37. KEPPRA [Concomitant]
     Indication: CONVULSION
     Dosage: 80 MG, Q12H
     Dates: start: 20070911, end: 20070914
  38. KEPPRA [Concomitant]
     Dosage: 160 MG, Q12H
     Dates: start: 20070915, end: 20070918
  39. KEPPRA [Concomitant]
     Dosage: 240 MG, Q12H
     Dates: start: 20070919
  40. OMNICEF [Concomitant]
     Dosage: UNK, BID
     Dates: start: 20070423, end: 20070430
  41. GENTAMYCIN SULFATE [Concomitant]
     Dosage: UNK, TID
     Dates: start: 20070424, end: 20070504
  42. MOTRIN [Concomitant]
     Dosage: UNK, PRN, Q6-8H

REACTIONS (3)
  - CONVULSION [None]
  - MUSCULAR WEAKNESS [None]
  - PNEUMONIA [None]
